FAERS Safety Report 21513638 (Version 5)
Quarter: 2023Q1

REPORT INFORMATION
  Report Type: Report from Study
  Country: US (occurrence: US)
  Receive Date: 20221027
  Receipt Date: 20230102
  Transmission Date: 20230417
  Serious: Yes (Other)
  Sender: FDA-Public Use
  Company Number: US-NOVARTISTESTPH-NVSC2022US242212

PATIENT
  Age: 79 Year
  Sex: Female

DRUGS (2)
  1. KISQALI [Suspect]
     Active Substance: RIBOCICLIB
     Indication: Product used for unknown indication
     Dosage: 600 MG, QD
     Route: 048
     Dates: start: 20220401, end: 20221025
  2. KISQALI [Suspect]
     Active Substance: RIBOCICLIB
     Dosage: 600 MG, QD
     Route: 048
     Dates: start: 20221110, end: 20221227

REACTIONS (11)
  - Neutropenia [Unknown]
  - Paraesthesia [Unknown]
  - Inflammation [Unknown]
  - Arthralgia [Unknown]
  - Pain of skin [Unknown]
  - Alopecia [Unknown]
  - Decreased appetite [Unknown]
  - Headache [Recovering/Resolving]
  - Pruritus [Unknown]
  - Drug ineffective [Unknown]
  - Fatigue [Unknown]

NARRATIVE: CASE EVENT DATE: 20220401
